FAERS Safety Report 5601369-2 (Version None)
Quarter: 2008Q1

REPORT INFORMATION
  Report Type: 
  Country: None (occurrence: None)
  Receive Date: 20080118
  Receipt Date: 20080108
  Transmission Date: 20080703
  Serious: Yes (Hospitalization)
  Sender: FDA-Public Use
  Company Number: 2007US003005

PATIENT
  Age: 48 Year
  Sex: Male

DRUGS (12)
  1. PROGRAF(TACROLIMUS CAPSULES) PROGRAF(TACROLIMUS) CAPSULE [Suspect]
     Indication: RENAL TRANSPLANT
     Dosage: 2 MG, BID, ORAL
     Route: 048
     Dates: start: 20050504
  2. MYCOPHENOLATE MOFETIL [Suspect]
     Indication: RENAL TRANSPLANT
     Dosage: 500 MG, QD, ORAL
     Route: 048
     Dates: start: 20060505
  3. PREDNISONE TAB [Concomitant]
     Indication: RENAL TRANSPLANT
     Dosage: 10 MG, ORAL
     Route: 048
     Dates: start: 20050504
  4. RAPAMUNE [Concomitant]
  5. CLONIDINE [Concomitant]
  6. NORVASC [Concomitant]
  7. LASIX [Concomitant]
  8. BACTRIM [Concomitant]
  9. NIFEREX (POLYSACCHARIDE-IRON COMPLEX) [Concomitant]
  10. PRILOSEC [Concomitant]
  11. LIPITOR [Concomitant]
  12. LOPRESSOR [Concomitant]

REACTIONS (1)
  - GLOMERULONEPHRITIS MEMBRANOPROLIFERATIVE [None]
